FAERS Safety Report 20814826 (Version 5)
Quarter: 2023Q1

REPORT INFORMATION
  Report Type: Spontaneous
  Country: US (occurrence: US)
  Receive Date: 20220511
  Receipt Date: 20230203
  Transmission Date: 20230417
  Serious: No
  Sender: FDA-Public Use
  Company Number: US-PFIZER INC-2017016339

PATIENT
  Age: 52 Year
  Sex: Female
  Weight: 63 kg

DRUGS (13)
  1. XELJANZ [Suspect]
     Active Substance: TOFACITINIB CITRATE
     Indication: Alopecia areata
     Dosage: 10 MG, 2X/DAY (2 TABS 2 TIMES A DAY)
     Route: 048
     Dates: start: 201512
  2. XELJANZ [Suspect]
     Active Substance: TOFACITINIB CITRATE
     Indication: Rheumatoid arthritis
     Dosage: 20 MG, DAILY
  3. XELJANZ [Suspect]
     Active Substance: TOFACITINIB CITRATE
     Indication: Alopecia
     Dosage: 10 MG, 2X/DAY[2 TABLETS IN THE MORNING AND 2 TABLETS AT NIGHT DAILY]
     Route: 048
     Dates: start: 2016
  4. XELJANZ [Suspect]
     Active Substance: TOFACITINIB CITRATE
     Indication: Pain
     Dosage: 5 MG, 2X/DAY, (ONE IN THE MORNING AND ONE 5MG TABLET IN THE EVENING)
     Route: 048
     Dates: start: 201705, end: 2017
  5. XELJANZ [Suspect]
     Active Substance: TOFACITINIB CITRATE
     Dosage: 10 MG, 2X/DAY  (TWO 5MG TABLETS IN THE MORNING AND TWO 5MG TABLETS AT NIGHT)
     Dates: start: 2017
  6. XELJANZ [Suspect]
     Active Substance: TOFACITINIB CITRATE
     Dosage: 10 MG, 1X/DAY (5MG 2 TABLETS IN THE MORNING)
  7. XELJANZ [Suspect]
     Active Substance: TOFACITINIB CITRATE
     Dosage: 5 MG, 1X/DAY (1 TABLET IN THE EVENING)
  8. XELJANZ [Suspect]
     Active Substance: TOFACITINIB CITRATE
     Dosage: 10 MG, 3X/DAY
  9. XELJANZ [Suspect]
     Active Substance: TOFACITINIB CITRATE
     Dosage: 15 MG, DAILY (XELJANZ 5MG; TWO TABLETS IN THE MORNING, AND ONE TABLET AT NIGHT)
  10. XELJANZ [Suspect]
     Active Substance: TOFACITINIB CITRATE
     Dosage: 5 MG, 3X/DAY
  11. LITHIUM [Concomitant]
     Active Substance: LITHIUM
     Indication: Mood altered
     Dosage: UNK, 1X/DAY (TAKE 3 AT NIGHT)
  12. LORAZEPAM [Concomitant]
     Active Substance: LORAZEPAM
     Indication: Anxiety
     Dosage: UNK (TAKEN PERIODICALLY WHEN HAVING AN ANXIETY ATTACK)
     Dates: start: 201705
  13. LATUDA [Concomitant]
     Active Substance: LURASIDONE HYDROCHLORIDE
     Indication: Bipolar disorder
     Dosage: 40 MG, 2X/DAY,(ONE THE MORNING AND ONE AT NIGHT)
     Route: 048
     Dates: start: 2017

REACTIONS (5)
  - Visual impairment [Not Recovered/Not Resolved]
  - Drug hypersensitivity [Unknown]
  - Off label use [Unknown]
  - Product use issue [Unknown]
  - Off label use [Unknown]

NARRATIVE: CASE EVENT DATE: 20151201
